FAERS Safety Report 17945533 (Version 1)
Quarter: 2020Q2

REPORT INFORMATION
  Report Type: Report from Study
  Country: US (occurrence: US)
  Receive Date: 20200625
  Receipt Date: 20200625
  Transmission Date: 20200714
  Serious: Yes (Disabling)
  Sender: FDA-Public Use
  Company Number: US-JNJFOC-20200626695

PATIENT
  Sex: Male

DRUGS (1)
  1. STELARA [Suspect]
     Active Substance: USTEKINUMAB
     Indication: CROHN^S DISEASE
     Route: 058

REACTIONS (5)
  - Product storage error [Unknown]
  - Product dose omission [Unknown]
  - Disability [Unknown]
  - Product container issue [Unknown]
  - Neuralgia [Unknown]

NARRATIVE: CASE EVENT DATE: 202006
